FAERS Safety Report 13333917 (Version 1)
Quarter: 2017Q1

REPORT INFORMATION
  Report Type: Spontaneous
  Country: FR (occurrence: FR)
  Receive Date: 20170314
  Receipt Date: 20170314
  Transmission Date: 20170428
  Serious: Yes (Hospitalization)
  Sender: FDA-Public Use
  Company Number: FR-PFIZER INC-2017103737

PATIENT
  Age: 58 Year
  Sex: Female

DRUGS (15)
  1. NEORAL [Suspect]
     Active Substance: CYCLOSPORINE
     Indication: LIVER TRANSPLANT
     Dosage: 100 MG, 2X/DAY
     Route: 048
  2. KARDEGIC [Suspect]
     Active Substance: ASPIRIN LYSINE
     Dosage: 75 MG, 1X/DAY
     Route: 048
  3. LANTUS [Concomitant]
     Active Substance: INSULIN GLARGINE
     Dosage: UNK
     Dates: end: 201612
  4. IMOVANE [Suspect]
     Active Substance: ZOPICLONE
     Dosage: 1 DF, 1X/DAY
     Route: 048
  5. EUPANTOL [Suspect]
     Active Substance: PANTOPRAZOLE SODIUM
     Dosage: 20 MG, 1X/DAY
     Route: 048
  6. NOVORAPID [Suspect]
     Active Substance: INSULIN ASPART
     Dosage: UNK
     Route: 058
  7. EUPRESSYL /00631801/ [Suspect]
     Active Substance: URAPIDIL
     Dosage: 60 MG, 2X/DAY
     Route: 048
  8. CORTANCYL [Suspect]
     Active Substance: PREDNISONE
     Indication: LIVER TRANSPLANT
     Dosage: 5 MG, 1X/DAY
     Route: 048
     Dates: start: 201512
  9. CERTICAN [Suspect]
     Active Substance: EVEROLIMUS
     Indication: LIVER TRANSPLANT
     Dosage: 0.5 MG, 2X/DAY
     Route: 048
     Dates: start: 201612
  10. TOUJEO [Suspect]
     Active Substance: INSULIN GLARGINE
     Dosage: 14 IU, 1X/DAY
     Route: 048
  11. ATORVASTATIN CALCIUM. [Suspect]
     Active Substance: ATORVASTATIN CALCIUM
     Dosage: 20 MG, 1X/DAY
     Route: 048
  12. NEORAL [Suspect]
     Active Substance: CYCLOSPORINE
     Dosage: DOSE DECREASED
     Route: 048
     Dates: start: 201612
  13. ZANIDIP [Suspect]
     Active Substance: LERCANIDIPINE HYDROCHLORIDE
     Dosage: 10 MG, 2X/DAY
     Route: 048
  14. CELLCEPT [Suspect]
     Active Substance: MYCOPHENOLATE MOFETIL\MYCOPHENOLATE MOFETIL HYDROCHLORIDE
     Indication: LIVER TRANSPLANT
     Dosage: 500 MG, 2X/DAY
     Route: 048
     Dates: start: 201512
  15. DELURSAN [Suspect]
     Active Substance: URSODIOL
     Dosage: 500 MG, 2X/DAY
     Route: 048

REACTIONS (2)
  - Visual acuity reduced [Recovering/Resolving]
  - Papilloedema [Recovering/Resolving]

NARRATIVE: CASE EVENT DATE: 201701
